FAERS Safety Report 26164347 (Version 1)
Quarter: 2025Q4

REPORT INFORMATION
  Report Type: Spontaneous
  Country: CA (occurrence: CA)
  Receive Date: 20251216
  Receipt Date: 20251216
  Transmission Date: 20260118
  Serious: Yes (Other)
  Sender: VERTEX
  Company Number: CA-VERTEX PHARMACEUTICALS-2025-009576

PATIENT
  Age: 42 Year
  Sex: Female

DRUGS (11)
  1. TRIKAFTA [Interacting]
     Active Substance: ELEXACAFTOR\IVACAFTOR\TEZACAFTOR
     Indication: Cystic fibrosis
     Dosage: 2 DOSAGE FORM AND 1 DOSAGE FORM ONCE EVERY DAY
     Route: 061
  2. REPAGLINIDE [Interacting]
     Active Substance: REPAGLINIDE
     Indication: Cystic fibrosis related diabetes
     Dosage: UNK
     Route: 061
  3. REPAGLINIDE [Interacting]
     Active Substance: REPAGLINIDE
     Dosage: 5 MILLIGRAM, QD
     Route: 061
  4. REPAGLINIDE [Interacting]
     Active Substance: REPAGLINIDE
     Dosage: 4 MILLIGRAM, QD
     Route: 061
  5. BREVICON [Concomitant]
     Active Substance: ETHINYL ESTRADIOL\NORETHINDRONE
     Dosage: UNK
  6. CREON [Concomitant]
     Active Substance: PANCRELIPASE AMYLASE\PANCRELIPASE LIPASE\PANCRELIPASE PROTEASE
     Dosage: UNK
  7. MIRTAZAPINE [Concomitant]
     Active Substance: MIRTAZAPINE
     Dosage: UNK
  8. VITAMIN D [Concomitant]
     Active Substance: VITAMIN D NOS
     Dosage: UNK
  9. VITAMIN E [Concomitant]
     Active Substance: .ALPHA.-TOCOPHEROL
     Dosage: UNK
  10. ZOLPIDEM [Concomitant]
     Active Substance: ZOLPIDEM TARTRATE
     Dosage: UNK
     Route: 061
  11. CENTRUM FORTE [Concomitant]
     Dosage: UNK

REACTIONS (5)
  - Hepatotoxicity [Recovered/Resolved]
  - Drug interaction [Recovered/Resolved]
  - Alanine aminotransferase increased [Recovered/Resolved]
  - Aspartate aminotransferase increased [Recovered/Resolved]
  - Transaminases increased [Recovered/Resolved]
